FAERS Safety Report 6639960-7 (Version None)
Quarter: 2010Q1

REPORT INFORMATION
  Report Type: 
  Country: None (occurrence: None)
  Receive Date: 20100315
  Receipt Date: 20100305
  Transmission Date: 20100710
  Serious: Yes (Hospitalization, Other)
  Sender: FDA-Public Use
  Company Number: 007885

PATIENT
  Sex: Male
  Weight: 81.1939 kg

DRUGS (11)
  1. ROTIGOTINE [Suspect]
     Indication: PARKINSON'S DISEASE
     Dosage: (6 MG 1X/24HOURS TRANSDERMAL)
     Route: 062
     Dates: start: 20090203
  2. AMBIEN [Concomitant]
  3. DIOVAN [Concomitant]
  4. VITAMIN D [Concomitant]
  5. XANAX [Concomitant]
  6. SINEMET CR [Concomitant]
  7. AMANTADINE HCL [Concomitant]
  8. COMTAN [Concomitant]
  9. REMERON [Concomitant]
  10. COLONAZEPAM [Concomitant]
  11. ROTIGOTINE [Concomitant]

REACTIONS (2)
  - FALL [None]
  - FEMORAL NECK FRACTURE [None]
